FAERS Safety Report 23674887 (Version 1)
Quarter: 2024Q1

REPORT INFORMATION
  Report Type: Spontaneous
  Country: US (occurrence: US)
  Receive Date: 20240326
  Receipt Date: 20240326
  Transmission Date: 20240409
  Serious: No
  Sender: FDA-Public Use
  Company Number: US-Covis Pharma GmbH-2024COV00269

PATIENT
  Age: 69 Year
  Sex: Male

DRUGS (22)
  1. RILUZOLE [Suspect]
     Active Substance: RILUZOLE
     Route: 048
  2. RELYVRIO [Suspect]
     Active Substance: SODIUM PHENYLBUTYRATE\TAURURSODIOL
     Indication: Amyotrophic lateral sclerosis
     Dosage: 1 DOSAGE FORM 1 SACHET ONCE DAILY FOR 3 WEEKS, THEN 1 SACHET TWICE DAILY, 2/DAYS;
     Route: 048
     Dates: start: 20221129
  3. RELYVRIO [Suspect]
     Active Substance: SODIUM PHENYLBUTYRATE\TAURURSODIOL
     Dosage: 1 DOSAGE FORM 1 SACHET ONCE DAILY, EVERY 1 DAYS
     Route: 048
  4. RADICAVA [Concomitant]
     Active Substance: EDARAVONE
     Dosage: 105 MG/5 ML
     Route: 048
  5. VITAMIN B12 [Concomitant]
     Active Substance: CYANOCOBALAMIN
  6. MAGNESIUM [Concomitant]
     Active Substance: MAGNESIUM
  7. KRILL OIL [Concomitant]
     Active Substance: DIETARY SUPPLEMENT\KRILL OIL
  8. MONTELUKAST SODIUM [Concomitant]
     Active Substance: MONTELUKAST SODIUM
  9. AMLODIPINE BESYLATE [Concomitant]
     Active Substance: AMLODIPINE BESYLATE
  10. ALPRAZOLAM [Concomitant]
     Active Substance: ALPRAZOLAM
  11. MIRTAZAPINE [Concomitant]
     Active Substance: MIRTAZAPINE
  12. ALBUTEROL SULFATE [Concomitant]
     Active Substance: ALBUTEROL SULFATE
  13. FLONASE ALLERGY RELIEF [Concomitant]
     Active Substance: FLUTICASONE PROPIONATE
  14. METHOCARBAMOL [Concomitant]
     Active Substance: METHOCARBAMOL
  15. LEVALBUTEROL [Concomitant]
     Active Substance: LEVALBUTEROL
  16. BREO ELLIPTA [Concomitant]
     Active Substance: FLUTICASONE FUROATE\VILANTEROL TRIFENATATE
     Dosage: 100-25 MCG BLST W/DEV
  17. SODIUM CHLORIDE [Concomitant]
     Active Substance: SODIUM CHLORIDE
     Dosage: SODIUM CHLORIDE 0.9 % VIAL NEB
  18. MUCINEX [Concomitant]
     Active Substance: GUAIFENESIN
  19. INCRUSE ELLIPTA [Concomitant]
     Active Substance: UMECLIDINIUM BROMIDE
     Dosage: 62.5 UG BLST W/DEV
  20. TADALAFIL [Concomitant]
     Active Substance: TADALAFIL
  21. FINASTERIDE [Concomitant]
     Active Substance: FINASTERIDE
  22. OMEPRAZOLE [Concomitant]
     Active Substance: OMEPRAZOLE

REACTIONS (9)
  - Laryngitis [Unknown]
  - Liver function test increased [Unknown]
  - Muscular weakness [Unknown]
  - Flushing [Unknown]
  - Fatigue [Unknown]
  - Intentional dose omission [Unknown]
  - Rash pruritic [Recovering/Resolving]
  - Product use complaint [Unknown]
  - Abdominal pain [Not Recovered/Not Resolved]

NARRATIVE: CASE EVENT DATE: 20230713
